FAERS Safety Report 6160501-5 (Version None)
Quarter: 2009Q2

REPORT INFORMATION
  Report Type: 
  Country: None (occurrence: None)
  Receive Date: 20090415
  Receipt Date: 20090415
  Transmission Date: 20091009
  Serious: Yes (Disabling, Other)
  Sender: FDA-Public Use
  Company Number: None

PATIENT
  Age: 25 Year
  Sex: Female

DRUGS (1)
  1. ACETYLSALICYLIC ACID SRT [Suspect]
     Indication: ARTHRITIS
     Dosage: 80 MG KG DAY, ORAL
     Route: 048

REACTIONS (7)
  - BLOOD ALBUMIN DECREASED [None]
  - DEAFNESS [None]
  - GENERALISED OEDEMA [None]
  - GLOMERULONEPHRITIS [None]
  - PROTEINURIA [None]
  - THERAPEUTIC AGENT TOXICITY [None]
  - TINNITUS [None]
